FAERS Safety Report 13473136 (Version 2)
Quarter: 2017Q3

REPORT INFORMATION
  Report Type: Spontaneous
  Country: US (occurrence: US)
  Receive Date: 20170424
  Receipt Date: 20170922
  Transmission Date: 20171127
  Serious: Yes (Hospitalization)
  Sender: FDA-Public Use
  Company Number: US-JNJFOC-20170423450

PATIENT
  Age: 66 Year
  Sex: Male

DRUGS (7)
  1. XARELTO [Suspect]
     Active Substance: RIVAROXABAN
     Indication: ATRIAL FIBRILLATION
     Route: 048
     Dates: start: 20150630, end: 20160502
  2. XARELTO [Suspect]
     Active Substance: RIVAROXABAN
     Indication: CEREBROVASCULAR ACCIDENT PROPHYLAXIS
     Route: 048
     Dates: start: 20150630, end: 20160502
  3. ASPIRIN. [Suspect]
     Active Substance: ASPIRIN
     Indication: CATHETERISATION CARDIAC
     Route: 065
     Dates: start: 201506
  4. ASPIRIN. [Suspect]
     Active Substance: ASPIRIN
     Indication: CATHETERISATION CARDIAC
     Route: 065
     Dates: start: 201605
  5. EFFIENT [Suspect]
     Active Substance: PRASUGREL HYDROCHLORIDE
     Indication: CATHETERISATION CARDIAC
     Route: 065
     Dates: end: 201605
  6. ASPIRIN. [Suspect]
     Active Substance: ASPIRIN
     Indication: ARTHRALGIA
     Route: 065
     Dates: start: 201605
  7. ASPIRIN. [Suspect]
     Active Substance: ASPIRIN
     Indication: ARTHRALGIA
     Route: 065
     Dates: start: 201506

REACTIONS (3)
  - Epistaxis [Unknown]
  - Gastrointestinal haemorrhage [Recovering/Resolving]
  - Blood urine present [Unknown]

NARRATIVE: CASE EVENT DATE: 20160502
